FAERS Safety Report 7051471-6 (Version None)
Quarter: 2010Q4

REPORT INFORMATION
  Report Type: 
  Country: None (occurrence: None)
  Receive Date: 20101019
  Receipt Date: 20101011
  Transmission Date: 20110411
  Serious: Yes (Other)
  Sender: FDA-Public Use
  Company Number: A0887249A

PATIENT
  Age: 42 Year
  Sex: Male

DRUGS (2)
  1. WELLBUTRIN [Suspect]
     Indication: PRODUCT USED FOR UNKNOWN INDICATION
     Dosage: 150MG UNKNOWN
     Route: 065
     Dates: start: 20100921, end: 20100924
  2. LAMICTAL [Concomitant]

REACTIONS (9)
  - DECREASED APPETITE [None]
  - DRY MOUTH [None]
  - HEADACHE [None]
  - HYPERHIDROSIS [None]
  - ILL-DEFINED DISORDER [None]
  - INSOMNIA [None]
  - INTENTIONAL SELF-INJURY [None]
  - MANIA [None]
  - OBSESSIVE-COMPULSIVE DISORDER [None]
